FAERS Safety Report 7373724-4 (Version None)
Quarter: 2011Q1

REPORT INFORMATION
  Report Type: 
  Country: None (occurrence: None)
  Receive Date: 20110325
  Receipt Date: 20101207
  Transmission Date: 20110831
  Serious: No
  Sender: FDA-Public Use
  Company Number: US-MYLANLABS-2010S1021294

PATIENT
  Age: 54 Year
  Sex: Female
  Weight: 83.92 kg

DRUGS (5)
  1. PROPRANOLOL HYDROCHLORIDE [Suspect]
     Indication: MIGRAINE
     Dosage: QD
     Route: 048
     Dates: start: 20040101
  2. PROPRANOLOL HYDROCHLORIDE [Suspect]
     Indication: MITRAL VALVE PROLAPSE
     Dosage: QD
     Route: 048
     Dates: start: 20040101
  3. PROPRANOLOL HYDROCHLORIDE [Suspect]
     Indication: BLOOD PRESSURE
     Dosage: QD
     Route: 048
     Dates: start: 20040101
  4. NEXIUM [Concomitant]
     Indication: GASTROOESOPHAGEAL REFLUX DISEASE
     Route: 048
     Dates: start: 20040101
  5. HYDROCHLOROTHIAZIDE [Concomitant]

REACTIONS (3)
  - WEIGHT INCREASED [None]
  - DRUG INEFFECTIVE [None]
  - MIGRAINE [None]
